FAERS Safety Report 25081746 (Version 1)
Quarter: 2025Q1

REPORT INFORMATION
  Report Type: Spontaneous
  Country: AU (occurrence: AU)
  Receive Date: 20250317
  Receipt Date: 20250317
  Transmission Date: 20250409
  Serious: Yes (Hospitalization, Other)
  Sender: ASTELLAS
  Company Number: AU-ASTELLAS-2025-AER-014752

PATIENT
  Sex: Male
  Weight: 100 kg

DRUGS (4)
  1. XTANDI [Suspect]
     Active Substance: ENZALUTAMIDE
     Indication: Prostate cancer metastatic
     Route: 048
     Dates: start: 20240430, end: 20241106
  2. TALZENNA [Concomitant]
     Active Substance: TALAZOPARIB TOSYLATE
     Indication: Prostate cancer
     Dosage: 0.25MG+ 0.1 MG
     Route: 048
     Dates: start: 20240804
  3. TALZENNA [Concomitant]
     Active Substance: TALAZOPARIB TOSYLATE
     Dosage: 0.25MG+ 0.1 MG
     Route: 048
     Dates: start: 20241225
  4. TALZENNA [Concomitant]
     Active Substance: TALAZOPARIB TOSYLATE
     Dosage: 0.25MG+ 0.1 MG
     Route: 048
     Dates: start: 20250115

REACTIONS (3)
  - Ischaemic stroke [Recovered/Resolved with Sequelae]
  - Haemorrhagic transformation stroke [Recovered/Resolved with Sequelae]
  - Underdose [Unknown]

NARRATIVE: CASE EVENT DATE: 20240430
